FAERS Safety Report 13362793 (Version 1)
Quarter: 2017Q1

REPORT INFORMATION
  Report Type: Spontaneous
  Country: IT (occurrence: IT)
  Receive Date: 20170323
  Receipt Date: 20170323
  Transmission Date: 20170429
  Serious: Yes (Hospitalization)
  Sender: FDA-Public Use
  Company Number: IT-AUROBINDO-AUR-APL-2017-31504

PATIENT
  Age: 53 Year
  Sex: Male

DRUGS (1)
  1. IBUPROFEN. [Suspect]
     Active Substance: IBUPROFEN
     Indication: MYALGIA
     Dosage: 600 MG, TOTAL
     Route: 048
     Dates: start: 20170305, end: 20170305

REACTIONS (1)
  - Diverticular perforation [Recovered/Resolved]

NARRATIVE: CASE EVENT DATE: 20170307
